FAERS Safety Report 7032104-1 (Version None)
Quarter: 2010Q4

REPORT INFORMATION
  Report Type: 
  Country: None (occurrence: None)
  Receive Date: 20101007
  Receipt Date: 20100110
  Transmission Date: 20110411
  Serious: Yes (Hospitalization)
  Sender: FDA-Public Use
  Company Number: IL-BRISTOL-MYERS SQUIBB COMPANY-14733174

PATIENT
  Age: 76 Year
  Sex: Male
  Weight: 84 kg

DRUGS (3)
  1. CETUXIMAB [Suspect]
     Indication: NON-SMALL CELL LUNG CANCER
     Dosage: 5MG/ML. 24MAY09-26JUL09 RECENT INF-26JUL09, 7TH INF RESTARTED ON 09AUG09
     Route: 042
     Dates: start: 20090524
  2. CISPLATIN [Suspect]
     Indication: NON-SMALL CELL LUNG CANCER
     Dosage: DAY 1 OF 21 DAY CYCLE. NO OF INFUSIONS = 4;RECENT INF-26JUL09
     Route: 042
     Dates: start: 20090524
  3. VINORELBINE [Suspect]
     Indication: NON-SMALL CELL LUNG CANCER
     Dosage: DAYS 1+8 OF 21DAY CYCLE;RECENT INF-26JUL09
     Route: 042
     Dates: start: 20090524, end: 20090726

REACTIONS (1)
  - TRANSIENT ISCHAEMIC ATTACK [None]
